FAERS Safety Report 10593616 (Version 2)
Quarter: 2014Q4

REPORT INFORMATION
  Report Type: Spontaneous
  Country: AR (occurrence: AR)
  Receive Date: 20141119
  Receipt Date: 20141209
  Transmission Date: 20150529
  Serious: Yes (Other)
  Sender: FDA-Public Use
  Company Number: AR-ELI_LILLY_AND_COMPANY-AR201411003948

PATIENT
  Age: 30 Year
  Sex: Male

DRUGS (2)
  1. MIDAX [Suspect]
     Active Substance: OLANZAPINE
     Indication: MENTAL RETARDATION
  2. MIDAX [Suspect]
     Active Substance: OLANZAPINE
     Indication: AGGRESSION
     Dosage: 10 MG, UNK
     Route: 048
     Dates: start: 20140307, end: 20140807

REACTIONS (4)
  - Neurological decompensation [Not Recovered/Not Resolved]
  - Off label use [Not Recovered/Not Resolved]
  - Constipation [Not Recovered/Not Resolved]
  - Urinary retention [Not Recovered/Not Resolved]

NARRATIVE: CASE EVENT DATE: 20140307
